FAERS Safety Report 10776952 (Version 1)
Quarter: 2015Q1

REPORT INFORMATION
  Report Type: Spontaneous
  Country: US (occurrence: None)
  Receive Date: 20150206
  Receipt Date: 20150206
  Transmission Date: 20150721
  Serious: Yes (Disabling)
  Sender: FDA-Public Use
  Company Number: None

PATIENT
  Age: 74 Year
  Sex: Male
  Weight: 81.65 kg

DRUGS (1)
  1. LEVOFLOXACIN. [Suspect]
     Active Substance: LEVOFLOXACIN
     Indication: SINUSITIS
     Dosage: 10 PILLS
     Route: 048
     Dates: start: 20141029, end: 20141107

REACTIONS (2)
  - Tendon disorder [None]
  - Pain in extremity [None]

NARRATIVE: CASE EVENT DATE: 20150113
